FAERS Safety Report 24184812 (Version 1)
Quarter: 2024Q3

REPORT INFORMATION
  Report Type: Spontaneous
  Country: CN (occurrence: CN)
  Receive Date: 20240807
  Receipt Date: 20240807
  Transmission Date: 20241017
  Serious: Yes (Hospitalization)
  Sender: TAKEDA
  Company Number: CN-TAKEDA-2024TUS078662

PATIENT
  Age: 43 Year
  Sex: Male
  Weight: 53.4 kg

DRUGS (2)
  1. LIVTENCITY [Suspect]
     Active Substance: MARIBAVIR
     Indication: Cytomegalovirus infection
     Dosage: UNK UNK, BID
     Route: 048
     Dates: start: 20240522, end: 20240723
  2. PREVYMIS [Suspect]
     Active Substance: LETERMOVIR
     Indication: Infection
     Dosage: UNK UNK, QD
     Route: 048
     Dates: start: 20240514, end: 20240522

REACTIONS (2)
  - Alanine aminotransferase increased [Recovering/Resolving]
  - Blood alkaline phosphatase increased [Recovering/Resolving]

NARRATIVE: CASE EVENT DATE: 20240613
